FAERS Safety Report 5753744-3 (Version None)
Quarter: 2008Q2

REPORT INFORMATION
  Report Type: 
  Country: None (occurrence: None)
  Receive Date: 20080527
  Receipt Date: 20080527
  Transmission Date: 20081010
  Serious: Yes (Hospitalization)
  Sender: FDA-Public Use
  Company Number: None

PATIENT
  Sex: Female
  Weight: 50.6 kg

DRUGS (2)
  1. CYTARABINE [Suspect]
     Dosage: 15500 MG
  2. ETOPOSIDE [Suspect]
     Dosage: 1150 MG

REACTIONS (8)
  - DIZZINESS [None]
  - HEADACHE [None]
  - NAUSEA [None]
  - PANCYTOPENIA [None]
  - PNEUMONIA KLEBSIELLA [None]
  - PYREXIA [None]
  - RESPIRATORY DISORDER [None]
  - SINUS HEADACHE [None]
